FAERS Safety Report 14379725 (Version 2)
Quarter: 2018Q1

REPORT INFORMATION
  Report Type: Spontaneous
  Country: BR (occurrence: BR)
  Receive Date: 20180112
  Receipt Date: 20180115
  Transmission Date: 20180509
  Serious: Yes (Hospitalization)
  Sender: FDA-Public Use
  Company Number: BR-ASTRAZENECA-2018SE03922

PATIENT
  Age: 1104 Month
  Sex: Female

DRUGS (4)
  1. RITMONORM [Concomitant]
     Active Substance: PROPAFENONE HYDROCHLORIDE
  2. ATACAND HCT [Suspect]
     Active Substance: CANDESARTAN CILEXETIL\HYDROCHLOROTHIAZIDE
     Indication: BLOOD PRESSURE ABNORMAL
     Dosage: 16 + 12.5 MG
     Route: 048
     Dates: start: 2017, end: 201703
  3. ATACAND HCT [Suspect]
     Active Substance: CANDESARTAN CILEXETIL\HYDROCHLOROTHIAZIDE
     Indication: BLOOD PRESSURE ABNORMAL
     Dosage: 16 + 12.5 MG
     Route: 048
     Dates: start: 2017
  4. GINKGO BILOBA [Concomitant]
     Active Substance: GINKGO

REACTIONS (2)
  - Intestinal haemorrhage [Recovered/Resolved]
  - Intestinal polyp [Recovered/Resolved]

NARRATIVE: CASE EVENT DATE: 201703
